FAERS Safety Report 26083176 (Version 2)
Quarter: 2025Q4

REPORT INFORMATION
  Report Type: Spontaneous
  Country: US (occurrence: US)
  Receive Date: 20251124
  Receipt Date: 20251202
  Transmission Date: 20260118
  Serious: Yes (Other)
  Sender: FERRING
  Company Number: US-FERRINGPH-2025FE06858

PATIENT

DRUGS (1)
  1. CLENPIQ [Suspect]
     Active Substance: ANHYDROUS CITRIC ACID\MAGNESIUM OXIDE\SODIUM PICOSULFATE
     Indication: Bowel preparation
     Dosage: UNK
     Route: 065
     Dates: start: 20251113, end: 20251113

REACTIONS (1)
  - Postprandial hypoglycaemia [Recovered/Resolved]

NARRATIVE: CASE EVENT DATE: 20251113
